FAERS Safety Report 9497085 (Version 5)
Quarter: 2014Q3

REPORT INFORMATION
  Report Type: Spontaneous
  Country: US (occurrence: US)
  Receive Date: 20130904
  Receipt Date: 20140808
  Transmission Date: 20150326
  Serious: Yes (Hospitalization, Other)
  Sender: FDA-Public Use
  Company Number: US-BAYER-2013-105636

PATIENT
  Age: 35 Year
  Sex: Female
  Weight: 53 kg

DRUGS (3)
  1. LO LOESTRIN FE [Concomitant]
     Active Substance: ETHINYL ESTRADIOL\NORETHINDRONE ACETATE
  2. VALTREX [Concomitant]
     Active Substance: VALACYCLOVIR HYDROCHLORIDE
     Indication: GENITAL HERPES
     Dosage: 500 MG, PRN
     Dates: start: 200711
  3. MIRENA [Suspect]
     Active Substance: LEVONORGESTREL
     Indication: CONTRACEPTION
     Dosage: 20 MCG/24HR, CONT
     Route: 015
     Dates: start: 20080201, end: 20120727

REACTIONS (11)
  - Device difficult to use [None]
  - Peritoneal adhesions [None]
  - Psychological trauma [None]
  - Infection [None]
  - Anxiety [None]
  - Medical device pain [None]
  - Injury [None]
  - Device breakage [None]
  - Depression [None]
  - Genital haemorrhage [None]
  - Uterine perforation [None]

NARRATIVE: CASE EVENT DATE: 2012
